FAERS Safety Report 16501554 (Version 1)
Quarter: 2019Q3

REPORT INFORMATION
  Report Type: Spontaneous
  Country: US (occurrence: US)
  Receive Date: 20190629
  Receipt Date: 20190629
  Transmission Date: 20191004
  Serious: No
  Sender: FDA-Public Use
  Company Number: None

PATIENT
  Age: 70 Year
  Sex: Female
  Weight: 67.5 kg

DRUGS (15)
  1. SLOW - RELEASE IRON [Concomitant]
  2. IBUPROFEN. [Concomitant]
     Active Substance: IBUPROFEN
  3. CALCIUM [Concomitant]
     Active Substance: CALCIUM
  4. METFORMIN [Concomitant]
     Active Substance: METFORMIN HYDROCHLORIDE
  5. HYDROCODONE [Concomitant]
     Active Substance: HYDROCODONE
  6. TUMERIC [Concomitant]
     Active Substance: HERBALS\TURMERIC
  7. HYDROCODONE-ACETAMINOPHEN 10/325 [Suspect]
     Active Substance: ACETAMINOPHEN\HYDROCODONE
     Indication: BACK PAIN
     Dosage: ?          QUANTITY:120 TABLET(S);?
     Route: 048
     Dates: start: 20190628
  8. OMEGA SEPCTRUM OIL [Concomitant]
  9. CBD OIL [Concomitant]
     Active Substance: CANNABIDIOL\HERBALS
  10. CARISPRODOL [Concomitant]
     Active Substance: CARISOPRODOL
  11. BORON. [Concomitant]
     Active Substance: BORON
  12. C [Concomitant]
  13. VITAMIN D3 [Concomitant]
     Active Substance: CHOLECALCIFEROL
  14. MAGNESIUM [Concomitant]
     Active Substance: MAGNESIUM
  15. ACETAMINOPHEN. [Concomitant]
     Active Substance: ACETAMINOPHEN

REACTIONS (8)
  - Blood pressure increased [None]
  - Drug ineffective [None]
  - Headache [None]
  - Muscle spasms [None]
  - Feeling abnormal [None]
  - Product substitution issue [None]
  - Abdominal pain upper [None]
  - Product complaint [None]

NARRATIVE: CASE EVENT DATE: 20190628
